FAERS Safety Report 9447897 (Version 1)
Quarter: 2013Q3

REPORT INFORMATION
  Report Type: Spontaneous
  Country: GB (occurrence: None)
  Receive Date: 20130806
  Receipt Date: 20130806
  Transmission Date: 20140515
  Serious: Yes (Congenital Anomaly)
  Sender: FDA-Public Use
  Company Number: GB-DEXPHARM-20130464

PATIENT
  Sex: 0

DRUGS (6)
  1. PREGABALIN (PREGABALIN) [Suspect]
     Indication: PAIN IN EXTREMITY
     Dosage: 300 MG MILLIGRAM(S)?SEP. DOSAGES/INTERVAL: 2 IN 1 DAYS
     Route: 064
  2. DIAZEPAM (DIAZEPAM) [Suspect]
     Dosage: 10 MG MILLIGRAM(S) ?SEP. DOSAGES/INTERVAL:?3 IN 1 DAYS
     Route: 064
  3. OLANZAPINE (OLANZAPINE) [Suspect]
     Indication: SCHIZOPHRENIA
     Dosage: 15 MG MILLIGRAM(S)?SEP. DOSAGES/INTERVAL?1 IN 1 DAYS
     Route: 064
  4. SUBUTEX [Suspect]
     Indication: SUBSTANCE ABUSE
     Dosage: 14 MG MILLIGRAM(S)?SEP. DOSAGES/INTERVAL:?1 IN 1 DAYS
     Route: 064
  5. ZOPICLONE (ZOPICLONE) [Suspect]
     Dosage: 15 MG MILLIGRAM(S)?SEP. DOSAGES/INTERVAL?1 IN 1 DAYS
     Route: 064
  6. OMEPRAZOLE (OMEPRAZOLE) [Suspect]
     Route: 064

REACTIONS (7)
  - Limb reduction defect [None]
  - Congenital scoliosis [None]
  - Single functional kidney [None]
  - Oesophageal atresia [None]
  - Congenital oesophageal anomaly [None]
  - Heart disease congenital [None]
  - Maternal drugs affecting foetus [None]
